FAERS Safety Report 13975829 (Version 8)
Quarter: 2017Q4

REPORT INFORMATION
  Report Type: Report from Study
  Country: CO (occurrence: CO)
  Receive Date: 20170915
  Receipt Date: 20171201
  Transmission Date: 20180321
  Serious: Yes (Life-Threatening, Hospitalization)
  Sender: FDA-Public Use
  Company Number: PHHY2017CO132725

PATIENT
  Sex: Male
  Weight: 69 kg

DRUGS (4)
  1. LOSARTAN. [Suspect]
     Active Substance: LOSARTAN
     Indication: PRODUCT USED FOR UNKNOWN INDICATION
     Dosage: UNK
     Route: 065
  2. REVOLADE [Suspect]
     Active Substance: ELTROMBOPAG
     Dosage: 50 MG, QD
     Route: 048
  3. ACETAMINOPHEN. [Concomitant]
     Active Substance: ACETAMINOPHEN
     Indication: PRODUCT USED FOR UNKNOWN INDICATION
     Dosage: UNK
     Route: 065
  4. REVOLADE [Suspect]
     Active Substance: ELTROMBOPAG
     Indication: THROMBOCYTOPENIC PURPURA
     Dosage: 25 MG, QD
     Route: 048
     Dates: start: 20140101

REACTIONS (15)
  - Hypertension [Unknown]
  - Coronary artery occlusion [Unknown]
  - Chest pain [Unknown]
  - Headache [Unknown]
  - Malaise [Unknown]
  - Agitation [Unknown]
  - Arrhythmia [Unknown]
  - Syncope [Unknown]
  - Platelet count decreased [Unknown]
  - Pain [Unknown]
  - Tachycardia [Unknown]
  - Chills [Unknown]
  - Pyrexia [Unknown]
  - Petechiae [Unknown]
  - Diarrhoea [Unknown]
